FAERS Safety Report 9610882 (Version 1)
Quarter: 2013Q4

REPORT INFORMATION
  Report Type: Spontaneous
  Country: SG (occurrence: SG)
  Receive Date: 20131009
  Receipt Date: 20131009
  Transmission Date: 20140711
  Serious: Yes (Other)
  Sender: FDA-Public Use
  Company Number: SG-BAYER-2013-121931

PATIENT
  Age: 51 Year
  Sex: Female

DRUGS (2)
  1. ACETYLSALICYLIC ACID (} 100 MG) [Suspect]
     Dosage: UNK
     Route: 048
  2. PANADOL [Suspect]
     Route: 048

REACTIONS (1)
  - Periorbital oedema [Unknown]
